FAERS Safety Report 9425621 (Version 1)
Quarter: 2013Q3

REPORT INFORMATION
  Report Type: Spontaneous
  Country: US (occurrence: US)
  Receive Date: 20130729
  Receipt Date: 20130729
  Transmission Date: 20140515
  Serious: No
  Sender: FDA-Public Use
  Company Number: US-TEVA-421461USA

PATIENT
  Age: 65 Year
  Sex: Female

DRUGS (1)
  1. COPAXONE [Suspect]
     Indication: MULTIPLE SCLEROSIS
     Dates: start: 20041115

REACTIONS (3)
  - Herpes zoster [Unknown]
  - Cystitis [Unknown]
  - Pyrexia [Unknown]
